FAERS Safety Report 8998826 (Version 1)
Quarter: 2013Q1

REPORT INFORMATION
  Report Type: Spontaneous
  Country: US (occurrence: US)
  Receive Date: 20130103
  Receipt Date: 20130103
  Transmission Date: 20140127
  Serious: Yes (Hospitalization)
  Sender: FDA-Public Use
  Company Number: US-BIOGENIDEC-2012BI064850

PATIENT
  Sex: Female

DRUGS (2)
  1. TYSABRI [Suspect]
     Indication: MULTIPLE SCLEROSIS
     Route: 042
     Dates: start: 20101026
  2. MEDICATION (NOS) [Concomitant]
     Indication: INFECTION PROPHYLAXIS

REACTIONS (3)
  - Abdominal pain lower [Unknown]
  - Ovarian cyst [Not Recovered/Not Resolved]
  - Vaginitis bacterial [Recovered/Resolved]
